FAERS Safety Report 5961329-9 (Version None)
Quarter: 2008Q4

REPORT INFORMATION
  Report Type: 
  Country: None (occurrence: None)
  Receive Date: 20081114
  Receipt Date: 20080214
  Transmission Date: 20090506
  Serious: Yes (Other)
  Sender: FDA-Public Use
  Company Number: US-WYE-H02682108

PATIENT
  Sex: Female

DRUGS (1)
  1. ADVIL COLD AND SINUS [Suspect]
     Indication: NASAL CONGESTION
     Dosage: 2 CAPLETS, ONCE, ORAL
     Route: 048
     Dates: start: 20080213, end: 20080214

REACTIONS (2)
  - CONDITION AGGRAVATED [None]
  - NASAL CONGESTION [None]
